FAERS Safety Report 17223036 (Version 5)
Quarter: 2020Q1

REPORT INFORMATION
  Report Type: Report from Study
  Country: None (occurrence: US)
  Receive Date: 20200102
  Receipt Date: 20200331
  Transmission Date: 20200409
  Serious: Yes (Other)
  Sender: FDA-Public Use
  Company Number: US-ABBVIE-19P-163-3211395-00

PATIENT
  Age: 80 Year
  Sex: Male

DRUGS (5)
  1. AMLODIPINE BESYLATE. [Concomitant]
     Active Substance: AMLODIPINE BESYLATE
     Indication: PRODUCT USED FOR UNKNOWN INDICATION
  2. IMBRUVICA [Suspect]
     Active Substance: IBRUTINIB
     Route: 048
  3. IMBRUVICA [Suspect]
     Active Substance: IBRUTINIB
     Route: 048
  4. LASIX [Concomitant]
     Active Substance: FUROSEMIDE
     Indication: FLUID RETENTION
  5. IMBRUVICA [Suspect]
     Active Substance: IBRUTINIB
     Indication: CHRONIC LYMPHOCYTIC LEUKAEMIA (IN REMISSION)
     Route: 048

REACTIONS (13)
  - Fluid retention [Recovered/Resolved]
  - Nasal congestion [Not Recovered/Not Resolved]
  - Hypertension [Recovering/Resolving]
  - Rash papular [Recovering/Resolving]
  - Blood pressure increased [Recovered/Resolved]
  - Hypertension [Not Recovered/Not Resolved]
  - Fluid retention [Recovering/Resolving]
  - Gout [Recovered/Resolved]
  - Pleural effusion [Not Recovered/Not Resolved]
  - Joint swelling [Unknown]
  - Dyspnoea [Not Recovered/Not Resolved]
  - Sleep disorder [Recovering/Resolving]
  - Haemoptysis [Recovering/Resolving]

NARRATIVE: CASE EVENT DATE: 20191113
